FAERS Safety Report 20426816 (Version 1)
Quarter: 2022Q1

REPORT INFORMATION
  Report Type: Spontaneous
  Country: DE (occurrence: DE)
  Receive Date: 20220204
  Receipt Date: 20220204
  Transmission Date: 20220424
  Serious: No
  Sender: FDA-Public Use
  Company Number: DE-EXELIXIS-CABO-21045815

PATIENT
  Age: 76 Year
  Sex: Female
  Weight: 107 kg

DRUGS (4)
  1. CABOMETYX [Suspect]
     Active Substance: CABOZANTINIB S-MALATE
     Indication: Renal cell carcinoma
     Dosage: 40 MG, QD
     Dates: start: 20210324, end: 20210510
  2. RAMIPRIL [Concomitant]
     Active Substance: RAMIPRIL
  3. SITAGLIPTIN [Concomitant]
     Active Substance: SITAGLIPTIN
  4. LEVOTHYROXINE [Concomitant]
     Active Substance: LEVOTHYROXINE

REACTIONS (7)
  - Arthralgia [Not Recovered/Not Resolved]
  - Rheumatoid arthritis [Recovering/Resolving]
  - General physical health deterioration [Recovering/Resolving]
  - C-reactive protein increased [Recovering/Resolving]
  - Depressed mood [Recovering/Resolving]
  - Decreased appetite [Recovering/Resolving]
  - Asthenia [Unknown]

NARRATIVE: CASE EVENT DATE: 20210412
